FAERS Safety Report 7820512 (Version 55)
Quarter: 2023Q1

REPORT INFORMATION
  Report Type: Report from Study
  Country: CA (occurrence: CA)
  Receive Date: 20110221
  Receipt Date: 20230208
  Transmission Date: 20230418
  Serious: Yes (Other)
  Sender: FDA-Public Use
  Company Number: PHHY2010CA08786

PATIENT
  Age: 71 Year
  Sex: Female

DRUGS (9)
  1. SANDOSTATIN LAR DEPOT [Suspect]
     Active Substance: OCTREOTIDE ACETATE
     Indication: Carcinoid tumour
     Dosage: 20 MG, QMO
     Route: 030
     Dates: start: 20060220
  2. SANDOSTATIN LAR DEPOT [Suspect]
     Active Substance: OCTREOTIDE ACETATE
     Dosage: 20 MG, QMO
     Route: 030
     Dates: start: 20080507
  3. SANDOSTATIN LAR DEPOT [Suspect]
     Active Substance: OCTREOTIDE ACETATE
     Dosage: 20 MG, Q4W
     Route: 030
     Dates: start: 20111014
  4. VITAMIN D [Concomitant]
     Active Substance: VITAMIN D NOS
     Indication: Product used for unknown indication
     Dosage: UNK (STRENGTH 10,000,MCG (UG)
     Route: 065
  5. FENOFIBRATE [Concomitant]
     Active Substance: FENOFIBRATE
     Indication: Product used for unknown indication
     Dosage: 145 MG (EVERY EVENING)
     Route: 048
  6. MAGNESIUM [Concomitant]
     Active Substance: MAGNESIUM
     Indication: Product used for unknown indication
     Dosage: UNK
     Route: 065
  7. ATORVASTATIN [Concomitant]
     Active Substance: ATORVASTATIN
     Indication: Product used for unknown indication
     Dosage: UNK
     Route: 065
  8. ONGLYZA [Concomitant]
     Active Substance: SAXAGLIPTIN HYDROCHLORIDE
     Indication: Product used for unknown indication
     Dosage: UNK
     Route: 065
  9. IRBESARTAN [Concomitant]
     Active Substance: IRBESARTAN
     Indication: Product used for unknown indication
     Dosage: UNK
     Route: 065

REACTIONS (25)
  - Blood pressure systolic increased [Unknown]
  - Carcinoembryonic antigen increased [Unknown]
  - Gastroenteritis [Unknown]
  - Blood pressure decreased [Unknown]
  - Musculoskeletal pain [Unknown]
  - Blood pressure increased [Unknown]
  - Postoperative adhesion [Unknown]
  - Influenza [Unknown]
  - Hair growth abnormal [Unknown]
  - Vitamin B12 deficiency [Unknown]
  - Frustration tolerance decreased [Unknown]
  - Fall [Unknown]
  - Skin abrasion [Unknown]
  - Blood pressure diastolic decreased [Unknown]
  - Hypersensitivity [Unknown]
  - SARS-CoV-2 test positive [Unknown]
  - Sensory disturbance [Unknown]
  - Stress [Unknown]
  - Dysphonia [Unknown]
  - Pharyngitis [Unknown]
  - Alopecia [Unknown]
  - Constipation [Unknown]
  - Injection site mass [Unknown]
  - Injection site induration [Unknown]
  - Injection site pain [Unknown]

NARRATIVE: CASE EVENT DATE: 20140701
